FAERS Safety Report 7877277-3 (Version None)
Quarter: 2011Q4

REPORT INFORMATION
  Report Type: 
  Country: None (occurrence: None)
  Receive Date: 20111031
  Receipt Date: 20111024
  Transmission Date: 20120403
  Serious: Yes (Other)
  Sender: FDA-Public Use
  Company Number: BR-B.I. PHARMACEUTICALS,INC./RIDGEFIELD-2011-BR-01171BR

PATIENT
  Age: 82 Year
  Sex: Female
  Weight: 53.3 kg

DRUGS (5)
  1. HYDROCHLOROTHIAZIDE [Concomitant]
  2. CLONIDINE HYDROCHLORIDE [Suspect]
     Dosage: 0.4 MG
  3. ENALAPRIL [Concomitant]
     Dosage: 20 MG
  4. RASILEZ HCT [Concomitant]
     Indication: HYPERTENSION
  5. AMLODIPINE [Concomitant]
     Dosage: 10 MG

REACTIONS (2)
  - BLOOD PRESSURE INCREASED [None]
  - HEART RATE DECREASED [None]
